FAERS Safety Report 7867951-7 (Version None)
Quarter: 2011Q4

REPORT INFORMATION
  Report Type: 
  Country: None (occurrence: None)
  Receive Date: 20111028
  Receipt Date: 20111026
  Transmission Date: 20120403
  Serious: Yes (Hospitalization)
  Sender: FDA-Public Use
  Company Number: FR-BAYER-2011-104681

PATIENT
  Age: 83 Year
  Sex: Female

DRUGS (7)
  1. RIFAMPIN [Concomitant]
     Indication: OSTEITIS
     Dosage: DAILY DOSE 1.2 G
     Route: 042
     Dates: start: 20110715, end: 20110722
  2. FOSFOMYCIN [Suspect]
     Indication: OSTEITIS
     Dosage: UNK
     Route: 048
     Dates: start: 20110805, end: 20110819
  3. CIPROFLOXACIN [Suspect]
     Dosage: 200 MG, BID
     Route: 048
     Dates: start: 20110813, end: 20110819
  4. VANCOMYCIN HCL [Concomitant]
     Indication: OSTEITIS
     Dosage: DAILY DOSE 2 G
     Dates: start: 20110715, end: 20110722
  5. TARGOCID [Suspect]
     Dosage: 330 MG, BID
     Dates: start: 20110730, end: 20110819
  6. TARGOCID [Suspect]
     Indication: OSTEITIS
     Dosage: 6 MG/KG*2/DAY
     Route: 058
     Dates: start: 20110722, end: 20110730
  7. RIFAMPIN [Concomitant]
     Dosage: UNK
     Route: 048

REACTIONS (3)
  - RASH GENERALISED [None]
  - RASH MACULO-PAPULAR [None]
  - OEDEMA [None]
